FAERS Safety Report 6739677-4 (Version None)
Quarter: 2010Q2

REPORT INFORMATION
  Report Type: 
  Country: None (occurrence: None)
  Receive Date: 20100525
  Receipt Date: 20100421
  Transmission Date: 20101027
  Serious: Yes (Other)
  Sender: FDA-Public Use
  Company Number: US-AMGEN-QUU404185

PATIENT
  Sex: Female
  Weight: 96 kg

DRUGS (13)
  1. NPLATE [Suspect]
     Indication: IDIOPATHIC THROMBOCYTOPENIC PURPURA
     Route: 058
     Dates: start: 20100310
  2. IRON [Concomitant]
     Route: 042
  3. ZOCOR [Concomitant]
  4. LASIX [Concomitant]
  5. HYDROXYZINE [Concomitant]
  6. LEXAPRO [Concomitant]
  7. HYDROCODONE [Concomitant]
  8. STOOL SOFTENER [Concomitant]
  9. FISH OIL [Concomitant]
  10. DULCOLAX [Concomitant]
  11. PROTONIX [Concomitant]
  12. PRILOSEC [Concomitant]
  13. INFED [Concomitant]
     Dates: start: 20100310

REACTIONS (3)
  - BURNING SENSATION [None]
  - DRUG INEFFECTIVE [None]
  - FLUSHING [None]
